FAERS Safety Report 7219202-4 (Version None)
Quarter: 2011Q1

REPORT INFORMATION
  Report Type: 
  Country: None (occurrence: None)
  Receive Date: 20110111
  Receipt Date: 20110106
  Transmission Date: 20110831
  Serious: Yes (Other)
  Sender: FDA-Public Use
  Company Number: US-AMGEN-USASP2011000980

PATIENT

DRUGS (3)
  1. TAXOTERE [Concomitant]
  2. CYTOXAN [Concomitant]
  3. NEULASTA [Suspect]
     Indication: CHEMOTHERAPY

REACTIONS (3)
  - OEDEMA PERIPHERAL [None]
  - CHEST PAIN [None]
  - RASH [None]
